FAERS Safety Report 6397784-2 (Version None)
Quarter: 2009Q4

REPORT INFORMATION
  Report Type: 
  Country: None (occurrence: None)
  Receive Date: 20091007
  Receipt Date: 20090924
  Transmission Date: 20100525
  Serious: Yes (Hospitalization)
  Sender: FDA-Public Use
  Company Number: 8052640

PATIENT
  Sex: Male

DRUGS (1)
  1. CIMZIA [Suspect]
     Dates: start: 20090819

REACTIONS (1)
  - CONVULSION [None]
